FAERS Safety Report 9397634 (Version 2)
Quarter: 2013Q3

REPORT INFORMATION
  Report Type: Spontaneous
  Country: JP (occurrence: JP)
  Receive Date: 20130712
  Receipt Date: 20130719
  Transmission Date: 20140515
  Serious: Yes (Hospitalization)
  Sender: FDA-Public Use
  Company Number: JP-SANOFI-AVENTIS-2013SA067674

PATIENT
  Age: 76 Year
  Sex: Male

DRUGS (8)
  1. ARAVA [Suspect]
     Indication: RHEUMATOID ARTHRITIS
     Route: 048
     Dates: end: 20101101
  2. RIFAMPICIN [Suspect]
     Indication: TUBERCULOSIS
     Route: 065
     Dates: start: 201002
  3. PREDNISOLONE [Suspect]
     Indication: PRODUCT USED FOR UNKNOWN INDICATION
     Route: 048
     Dates: end: 2010
  4. PREDNISOLONE [Suspect]
     Indication: PRODUCT USED FOR UNKNOWN INDICATION
     Route: 065
     Dates: start: 201011
  5. ETHAMBUTOL [Concomitant]
     Indication: TUBERCULOSIS
     Dates: start: 201002, end: 201012
  6. PYRAZINAMIDE [Concomitant]
     Indication: TUBERCULOSIS
     Dates: start: 201002, end: 201012
  7. ISONIAZID [Concomitant]
     Indication: TUBERCULOSIS
     Dates: start: 201002, end: 201012
  8. STREPTOMYCIN [Concomitant]
     Indication: TUBERCULOSIS
     Dates: start: 2010, end: 201012

REACTIONS (2)
  - Pneumonia bacterial [Recovered/Resolved]
  - Gastrointestinal disorder [Unknown]
